FAERS Safety Report 4382594-8 (Version None)
Quarter: 2004Q2

REPORT INFORMATION
  Report Type: 
  Country: None (occurrence: None)
  Receive Date: 20040622
  Receipt Date: 20040615
  Transmission Date: 20050107
  Serious: Yes (Hospitalization)
  Sender: FDA-Public Use
  Company Number: NO-MERCK-0406NOR00013

PATIENT
  Age: 75 Year
  Sex: Female

DRUGS (4)
  1. BENDROFLUMETHIAZIDE [Concomitant]
     Route: 048
  2. METOPROLOL TARTRATE [Concomitant]
     Route: 048
  3. VIOXX [Suspect]
     Indication: OSTEOARTHRITIS
     Route: 048
  4. ZOCOR [Concomitant]
     Route: 048

REACTIONS (3)
  - GASTRIC ULCER [None]
  - HAEMOGLOBIN DECREASED [None]
  - MELAENA [None]
